FAERS Safety Report 7527806-4 (Version None)
Quarter: 2011Q2

REPORT INFORMATION
  Report Type: 
  Country: None (occurrence: None)
  Receive Date: 20110607
  Receipt Date: 20110602
  Transmission Date: 20111010
  Serious: Yes (Other)
  Sender: FDA-Public Use
  Company Number: NL-PFIZER INC-2011120514

PATIENT
  Age: 45 Year
  Sex: Female
  Weight: 85 kg

DRUGS (2)
  1. DIAZEPAM [Concomitant]
  2. SERTRALINE HYDROCHLORIDE [Suspect]
     Indication: DRUG WITHDRAWAL SYNDROME
     Dosage: UNK
     Dates: start: 20110321, end: 20110407

REACTIONS (5)
  - ANXIETY [None]
  - NAUSEA [None]
  - CONFUSIONAL STATE [None]
  - PANIC ATTACK [None]
  - DELUSION [None]
